FAERS Safety Report 24440847 (Version 2)
Quarter: 2024Q4

REPORT INFORMATION
  Report Type: Report from Study
  Country: DE (occurrence: DE)
  Receive Date: 20241016
  Receipt Date: 20241017
  Transmission Date: 20250114
  Serious: No
  Sender: ROCHE
  Company Number: DE-ROCHE-3424414

PATIENT
  Sex: Male
  Weight: 63.0 kg

DRUGS (3)
  1. EMICIZUMAB [Suspect]
     Active Substance: EMICIZUMAB
     Indication: Haemophilia A with anti factor VIII
     Route: 058
     Dates: start: 20230119, end: 20230209
  2. EMICIZUMAB [Suspect]
     Active Substance: EMICIZUMAB
     Route: 058
     Dates: start: 20230226
  3. ELOCTA [Concomitant]
     Active Substance: EFMOROCTOCOG ALFA
     Route: 042
     Dates: start: 20160502, end: 20230117

REACTIONS (2)
  - Joint swelling [Recovered/Resolved]
  - Joint injury [Recovered/Resolved]

NARRATIVE: CASE EVENT DATE: 20230715
